FAERS Safety Report 14145189 (Version 3)
Quarter: 2019Q2

REPORT INFORMATION
  Report Type: Spontaneous
  Country: CA (occurrence: CA)
  Receive Date: 20171031
  Receipt Date: 20190610
  Transmission Date: 20190711
  Serious: Yes (Other)
  Sender: FDA-Public Use
  Company Number: CA-PFIZER INC-2017281322

PATIENT
  Age: 63 Year
  Sex: Male

DRUGS (13)
  1. METFORMIN [Concomitant]
     Active Substance: METFORMIN HYDROCHLORIDE
     Dosage: UNK
  2. BOSULIF [Suspect]
     Active Substance: BOSUTINIB MONOHYDRATE
     Dosage: 200 MG, 1X/DAY, PO DIE, FOR 1 WEEK
     Route: 048
  3. BISOPROLOL [Concomitant]
     Active Substance: BISOPROLOL
     Dosage: UNK
  4. LOPERAMIDE [Concomitant]
     Active Substance: LOPERAMIDE
     Dosage: UNK UNK, AS NEEDED
  5. BOSULIF [Suspect]
     Active Substance: BOSUTINIB MONOHYDRATE
     Dosage: 400 MG, 1X/DAY, PO DIE FOR 4 WEEKS
     Route: 048
  6. TRANDOLAPRIL. [Concomitant]
     Active Substance: TRANDOLAPRIL
     Dosage: UNK
  7. FLECAINIDE [Concomitant]
     Active Substance: FLECAINIDE
     Dosage: UNK
  8. CIALIS [Concomitant]
     Active Substance: TADALAFIL
     Dosage: UNK UNK, AS NEEDED
  9. BOSULIF [Suspect]
     Active Substance: BOSUTINIB MONOHYDRATE
     Indication: CHRONIC MYELOID LEUKAEMIA
     Dosage: 100 MG, 1X/DAY, PO DIE, FOR 1 WEEK
     Route: 048
     Dates: start: 20170627
  10. HCTZ [Concomitant]
     Active Substance: HYDROCHLOROTHIAZIDE
     Dosage: UNK
  11. ATIVAN [Concomitant]
     Active Substance: LORAZEPAM
     Dosage: UNK UNK, AS NEEDED
  12. BOSULIF [Suspect]
     Active Substance: BOSUTINIB MONOHYDRATE
     Dosage: 300 MG, 1X/DAY, PO DIE, FOR 1 WEEK
     Route: 048
  13. PSYLLIUM [PLANTAGO AFRA] [Concomitant]
     Active Substance: PLANTAGO AFRA SEED
     Dosage: UNK UNK, AS NEEDED

REACTIONS (8)
  - Skin discolouration [Unknown]
  - Bradycardia [Not Recovered/Not Resolved]
  - Hypertension [Unknown]
  - Scab [Unknown]
  - Hypercreatininaemia [Unknown]
  - Pain [Unknown]
  - Palpitations [Unknown]
  - Renal disorder [Unknown]
